FAERS Safety Report 14373716 (Version 2)
Quarter: 2018Q1

REPORT INFORMATION
  Report Type: Spontaneous
  Country: RU (occurrence: RU)
  Receive Date: 20180110
  Receipt Date: 20180118
  Transmission Date: 20180509
  Serious: Yes (Hospitalization)
  Sender: FDA-Public Use
  Company Number: RU-ASTRAZENECA-2018SE01919

PATIENT
  Age: 62 Year
  Sex: Male
  Weight: 64 kg

DRUGS (5)
  1. BRILINTA [Suspect]
     Active Substance: TICAGRELOR
     Indication: MYOCARDIAL INFARCTION
     Route: 048
     Dates: start: 20170728
  2. CARDIOMAGNYL [Concomitant]
     Active Substance: ASPIRIN\MAGNESIUM HYDROXIDE
  3. PRESTARIUM [Concomitant]
     Active Substance: PERINDOPRIL
  4. ATORVASTATIN [Concomitant]
     Active Substance: ATORVASTATIN
  5. EPLERENONE. [Concomitant]
     Active Substance: EPLERENONE

REACTIONS (6)
  - Myocardial ischaemia [Unknown]
  - Aortic arteriosclerosis [Unknown]
  - Blood pressure fluctuation [Recovering/Resolving]
  - Angina unstable [Unknown]
  - Left ventricular hypertrophy [Unknown]
  - Aortic valve sclerosis [Unknown]

NARRATIVE: CASE EVENT DATE: 201709
